FAERS Safety Report 10176217 (Version 1)
Quarter: 2014Q2

REPORT INFORMATION
  Report Type: Spontaneous
  Country: US (occurrence: US)
  Receive Date: 20140516
  Receipt Date: 20140516
  Transmission Date: 20141212
  Serious: No
  Sender: FDA-Public Use
  Company Number: US-BAYER-2014-072396

PATIENT
  Age: 62 Year
  Sex: Male

DRUGS (3)
  1. CIPRO [Suspect]
     Indication: DIARRHOEA
     Dosage: UNK
     Dates: start: 20140514
  2. CIPRO [Suspect]
     Indication: DIVERTICULITIS
  3. CIPRO [Suspect]
     Indication: DIVERTICULUM

REACTIONS (1)
  - Vision blurred [None]
